FAERS Safety Report 7983599-8 (Version None)
Quarter: 2011Q4

REPORT INFORMATION
  Report Type: 
  Country: None (occurrence: None)
  Receive Date: 20111215
  Receipt Date: 20111212
  Transmission Date: 20120403
  Serious: Yes (Other)
  Sender: FDA-Public Use
  Company Number: PHEH2011US009951

PATIENT
  Sex: Male
  Weight: 97.959 kg

DRUGS (1)
  1. RECLAST [Suspect]
     Indication: OSTEOPOROSIS
     Dosage: 5 MG, ONCE A YEAR
     Route: 042
     Dates: start: 20111118

REACTIONS (7)
  - EYE PAIN [None]
  - LACRIMATION INCREASED [None]
  - MONOPLEGIA [None]
  - INFLUENZA LIKE ILLNESS [None]
  - CHEST PAIN [None]
  - PYREXIA [None]
  - HEADACHE [None]
